FAERS Safety Report 8401330 (Version 8)
Quarter: 2014Q4

REPORT INFORMATION
  Report Type: Report from Study
  Country: PL (occurrence: PL)
  Receive Date: 20120210
  Receipt Date: 20141211
  Transmission Date: 20150529
  Serious: Yes (Other)
  Sender: FDA-Public Use
  Company Number: PL-ROCHE-1033783

PATIENT
  Age: 49 Year
  Sex: Female
  Weight: 78.7 kg

DRUGS (3)
  1. CYCLONAMINE [Concomitant]
     Active Substance: ETHAMSYLATE
     Route: 065
     Dates: start: 20120124, end: 20120131
  2. HYDROCORTISONUM [Concomitant]
     Route: 065
     Dates: start: 20111129
  3. VEMURAFENIB [Suspect]
     Active Substance: VEMURAFENIB
     Indication: MALIGNANT MELANOMA
     Dosage: LAST DOSE PRIOR TO SAE: 06/FEB/2012
     Route: 048
     Dates: start: 20111129

REACTIONS (2)
  - Acanthosis [Recovered/Resolved]
  - Papilloma [Recovered/Resolved]

NARRATIVE: CASE EVENT DATE: 20120124
